FAERS Safety Report 19181493 (Version 3)
Quarter: 2021Q2

REPORT INFORMATION
  Report Type: Report from Study
  Country: PA (occurrence: PA)
  Receive Date: 20210426
  Receipt Date: 20210522
  Transmission Date: 20210717
  Serious: Yes (Other)
  Sender: FDA-Public Use
  Company Number: NVSC2021PA092208

PATIENT
  Sex: Female
  Weight: 72.56 kg

DRUGS (2)
  1. GILENYA [Suspect]
     Active Substance: FINGOLIMOD HYDROCHLORIDE
     Indication: MULTIPLE SCLEROSIS
     Dosage: 0.5 MG, QD (AT MORNING WITH FOOD)
     Route: 048
     Dates: start: 20201117
  2. COAPROVEL [Concomitant]
     Active Substance: HYDROCHLOROTHIAZIDE\IRBESARTAN
     Indication: HYPERTENSION
     Dosage: 1 DF (300/25 MG), QD (ONE TABLET DAILY AT NIGHT) (5 YEARS AGO)
     Route: 048

REACTIONS (5)
  - Cognitive disorder [Unknown]
  - Unevaluable event [Unknown]
  - Anxiety [Unknown]
  - Emotional disorder [Unknown]
  - Memory impairment [Unknown]
